FAERS Safety Report 13487024 (Version 2)
Quarter: 2017Q2

REPORT INFORMATION
  Report Type: Report from Study
  Country: US (occurrence: US)
  Receive Date: 20170426
  Receipt Date: 20170616
  Transmission Date: 20170830
  Serious: Yes (Death, Hospitalization, Other)
  Sender: FDA-Public Use
  Company Number: US-TEVA-763379USA

PATIENT
  Age: 78 Year

DRUGS (7)
  1. ACYCLOVIR. [Concomitant]
     Active Substance: ACYCLOVIR
  2. ALEVE [Concomitant]
     Active Substance: NAPROXEN SODIUM
  3. PANTOPRAZOLE [Concomitant]
     Active Substance: PANTOPRAZOLE
  4. PENTOSTATIN. [Suspect]
     Active Substance: PENTOSTATIN
     Dosage: .0952 MG/M2 DAILY;
     Route: 042
     Dates: start: 20130211, end: 20130318
  5. RITUXAN [Suspect]
     Active Substance: RITUXIMAB
     Dosage: 25 MILLIGRAM DAILY;
     Route: 042
     Dates: start: 20130225, end: 20160523
  6. CYCLOPHOSPHAMIDE. [Suspect]
     Active Substance: CYCLOPHOSPHAMIDE
     Dosage: 57.1429 MILLIGRAM DAILY;
     Route: 042
     Dates: start: 20130211, end: 20130318
  7. TREANDA [Suspect]
     Active Substance: BENDAMUSTINE HYDROCHLORIDE
     Indication: CHRONIC LYMPHOCYTIC LEUKAEMIA
     Dosage: 2 MILLIGRAM DAILY;
     Route: 042
     Dates: start: 20150224, end: 20160523

REACTIONS (3)
  - Abdominal lymphadenopathy [Recovered/Resolved]
  - Autoimmune haemolytic anaemia [Fatal]
  - Laboratory test abnormal [Recovered/Resolved]

NARRATIVE: CASE EVENT DATE: 20170319
